FAERS Safety Report 25729546 (Version 1)
Quarter: 2025Q3

REPORT INFORMATION
  Report Type: Other
  Country: EU (occurrence: EU)
  Receive Date: 20250827
  Receipt Date: 20250827
  Transmission Date: 20251020
  Serious: Yes (Hospitalization)
  Sender: APPCO PHARMA LLC
  Company Number: EU-Appco Pharma LLC-2183282

PATIENT
  Age: 21 Year
  Sex: Female

DRUGS (3)
  1. FLUOXETINE [Suspect]
     Active Substance: FLUOXETINE HYDROCHLORIDE
     Indication: Product used for unknown indication
  2. SODIUM NITRITE [Suspect]
     Active Substance: SODIUM NITRITE
  3. IBUPROFEN [Suspect]
     Active Substance: IBUPROFEN

REACTIONS (2)
  - Overdose [Unknown]
  - Methaemoglobinaemia [Unknown]
